FAERS Safety Report 8831837 (Version 3)
Quarter: 2013Q1

REPORT INFORMATION
  Report Type: Spontaneous
  Country: US (occurrence: US)
  Receive Date: 20121008
  Receipt Date: 20130125
  Transmission Date: 20140127
  Serious: Yes (Hospitalization)
  Sender: FDA-Public Use
  Company Number: US-ELI_LILLY_AND_COMPANY-US201210000628

PATIENT
  Age: 66 Year
  Sex: Female
  Weight: 61.22 kg

DRUGS (9)
  1. FORTEO [Suspect]
     Dosage: 20 UG, QD
     Route: 058
     Dates: start: 20120209
  2. ATENOLOL [Concomitant]
  3. OMEPRAZOLE [Concomitant]
  4. FLEXERIL [Concomitant]
  5. MOBIC [Concomitant]
  6. PERCOCET [Concomitant]
  7. MORPHINE SULFATE [Concomitant]
  8. PRAVASTATIN [Concomitant]
  9. VALIUM [Concomitant]

REACTIONS (5)
  - Pyelonephritis [Recovered/Resolved]
  - Urinary tract infection [Recovered/Resolved]
  - Nephrolithiasis [Recovered/Resolved]
  - Constipation [Unknown]
  - Nephrolithiasis [Recovered/Resolved]
